FAERS Safety Report 22657672 (Version 5)
Quarter: 2024Q1

REPORT INFORMATION
  Report Type: Report from Study
  Country: US (occurrence: US)
  Receive Date: 20230630
  Receipt Date: 20240119
  Transmission Date: 20240409
  Serious: Yes (Other)
  Sender: FDA-Public Use
  Company Number: US-ABBVIE-5310153

PATIENT
  Age: 73 Year
  Sex: Female
  Weight: 86.182 kg

DRUGS (12)
  1. SKYRIZI [Suspect]
     Active Substance: RISANKIZUMAB-RZAA
     Indication: Psoriasis
     Dosage: 150
     Route: 058
     Dates: start: 20210607
  2. LANSOPRAZOLE [Concomitant]
     Active Substance: LANSOPRAZOLE
     Indication: Product used for unknown indication
     Dosage: 30 MG?FREQUENCY TEXT:  1 PILL PO  QD
  3. GLIMEPIRIDE [Concomitant]
     Active Substance: GLIMEPIRIDE
     Indication: Diabetes mellitus
     Dosage: ONLY TOOK AS NEED?FREQUENCY TEXT:  1 PILL PO  QD
     Route: 048
  4. METFORMIN [Concomitant]
     Active Substance: METFORMIN HYDROCHLORIDE
     Indication: Diabetes mellitus
     Dosage: TWO TIME A DAY?1000?FREQUENCY TEXT:  1 PILL PO BID
     Route: 048
  5. DORZOLAMIDE [Concomitant]
     Active Substance: DORZOLAMIDE
     Indication: Product used for unknown indication
     Dosage: DROPS
  6. LEVOTHYROXINE [Concomitant]
     Active Substance: LEVOTHYROXINE\LEVOTHYROXINE SODIUM
     Indication: Hypothyroidism
     Dosage: 125 MCG?FREQUENCY TEXT:  1 PILL PO  QD
     Route: 048
  7. LEVOTHYROXINE [Concomitant]
     Active Substance: LEVOTHYROXINE\LEVOTHYROXINE SODIUM
     Indication: Hypothyroidism
     Dosage: 88 MCG
     Route: 048
  8. CELEBREX [Concomitant]
     Active Substance: CELECOXIB
     Indication: Product used for unknown indication
     Dosage: 200
  9. CELEBREX [Concomitant]
     Active Substance: CELECOXIB
     Indication: Product used for unknown indication
     Dosage: PRODUCT (CELEBREX) - FREQUENCY TEXT: 1 PILL PO  QD
     Route: 048
  10. FUROSEMIDE [Concomitant]
     Active Substance: FUROSEMIDE
     Indication: Product used for unknown indication
     Dosage: 20 MG?FREQUENCY TEXT:  1 PILL PO  QD DAILY
  11. PANTOPRAZOLE [Concomitant]
     Active Substance: PANTOPRAZOLE
     Indication: Product used for unknown indication
     Dosage: 40 MFREQUENCY TEXT: 1 PILL PO  BID
  12. ATORVASTATIN [Concomitant]
     Active Substance: ATORVASTATIN
     Indication: Product used for unknown indication
     Dosage: 20 MG?FREQUENCY TEXT: 1 PILL PO  QD

REACTIONS (12)
  - Hepatic cirrhosis [Not Recovered/Not Resolved]
  - Portal shunt procedure [Recovered/Resolved]
  - Liver disorder [Not Recovered/Not Resolved]
  - Ascites [Unknown]
  - Memory impairment [Unknown]
  - Varices oesophageal [Unknown]
  - Loss of personal independence in daily activities [Unknown]
  - Weight decreased [Unknown]
  - Gait disturbance [Unknown]
  - Confusional state [Unknown]
  - Gastric varices haemorrhage [Unknown]
  - Hepatic encephalopathy [Not Recovered/Not Resolved]

NARRATIVE: CASE EVENT DATE: 20230607
